FAERS Safety Report 22605046 (Version 1)
Quarter: 2023Q2

REPORT INFORMATION
  Report Type: Spontaneous
  Country: US (occurrence: US)
  Receive Date: 20230615
  Receipt Date: 20230615
  Transmission Date: 20230721
  Serious: Yes (Other)
  Sender: FDA-Public Use
  Company Number: US-BRISTOL-MYERS SQUIBB COMPANY-2023-082768

PATIENT
  Age: 80 Year
  Sex: Female

DRUGS (3)
  1. REVLIMID [Suspect]
     Active Substance: LENALIDOMIDE
     Indication: Plasma cell myeloma
     Dosage: THERAPY START DATE - 01/25/2023 (ESTIMATED DATE AS THIS DATE WAS PATIENT^S FIRST DISPENSE)
     Dates: start: 20230125
  2. REVLIMID [Suspect]
     Active Substance: LENALIDOMIDE
     Dosage: FREQUENCY:14
  3. VELCADE [Suspect]
     Active Substance: BORTEZOMIB
     Indication: Product used for unknown indication

REACTIONS (7)
  - Dizziness [Unknown]
  - Peripheral swelling [Unknown]
  - Feeling abnormal [Unknown]
  - Haemoglobin decreased [Unknown]
  - Dyspnoea [Unknown]
  - Neuropathy peripheral [Unknown]
  - Off label use [Unknown]
